FAERS Safety Report 6671398-9 (Version None)
Quarter: 2010Q2

REPORT INFORMATION
  Report Type: 
  Country: None (occurrence: None)
  Receive Date: 20100407
  Receipt Date: 20100329
  Transmission Date: 20101027
  Serious: Yes (Other)
  Sender: FDA-Public Use
  Company Number: D0067060A

PATIENT
  Age: 10 Day
  Sex: Male
  Weight: 2.3 kg

DRUGS (1)
  1. ZIDOVUDINE [Suspect]
     Dosage: 14MG PER DAY
     Route: 042
     Dates: start: 20100217, end: 20100227

REACTIONS (1)
  - HAEMATOCHEZIA [None]
